FAERS Safety Report 22033847 (Version 1)
Quarter: 2023Q1

REPORT INFORMATION
  Report Type: Spontaneous
  Country: US (occurrence: US)
  Receive Date: 20230224
  Receipt Date: 20230224
  Transmission Date: 20230417
  Serious: No
  Sender: FDA-Public Use
  Company Number: US-MYLANLABS-2023M1017218

PATIENT
  Age: 54 Year
  Sex: Female

DRUGS (1)
  1. LYRICA [Suspect]
     Active Substance: PREGABALIN
     Indication: Product used for unknown indication
     Dosage: 100 MILLIGRAM, QD (100MG 1 X A DAY)
     Route: 065

REACTIONS (10)
  - Abdominal discomfort [Recovering/Resolving]
  - Facial pain [Recovering/Resolving]
  - Oral mucosal blistering [Recovering/Resolving]
  - Gingival swelling [Recovering/Resolving]
  - Neuralgia [Recovering/Resolving]
  - Tongue discomfort [Recovering/Resolving]
  - Pyrexia [Recovering/Resolving]
  - Headache [Recovering/Resolving]
  - Fatigue [Recovering/Resolving]
  - Pain [Recovering/Resolving]

NARRATIVE: CASE EVENT DATE: 20230205
